FAERS Safety Report 9906046 (Version 2)
Quarter: 2014Q1

REPORT INFORMATION
  Report Type: Spontaneous
  Country: US (occurrence: US)
  Receive Date: 20140218
  Receipt Date: 20140218
  Transmission Date: 20141002
  Serious: No
  Sender: FDA-Public Use
  Company Number: US-GILEAD-2011-0048270

PATIENT
  Age: 63 Year
  Sex: Male

DRUGS (4)
  1. LETAIRIS [Suspect]
     Indication: PULMONARY HYPERTENSION
     Dosage: 5 MG, UNK
     Route: 048
     Dates: start: 20111128
  2. LETAIRIS [Suspect]
     Indication: HEPATIC CIRRHOSIS
  3. ADCIRCA [Concomitant]
  4. FLOLAN [Concomitant]

REACTIONS (5)
  - Eye pain [Unknown]
  - Unevaluable event [Unknown]
  - Dyspnoea [Unknown]
  - Oedema peripheral [Unknown]
  - Oedema [Unknown]
